FAERS Safety Report 5246221-X (Version None)
Quarter: 2007Q1

REPORT INFORMATION
  Report Type: 
  Country: None (occurrence: None)
  Receive Date: 20070221
  Receipt Date: 20070208
  Transmission Date: 20070707
  Serious: Yes (Life-Threatening, Hospitalization)
  Sender: FDA-Public Use
  Company Number: 236325

PATIENT
  Age: 54 Year
  Sex: Female
  Weight: 55.1 kg

DRUGS (7)
  1. RITUXIMAB OR PLACEBO(RITUXIMAB) CONC FOR SOLUTION FOR INFUSION [Suspect]
     Indication: MULTIPLE SCLEROSIS
     Dosage: 2 G, INTRAVENOUS
     Route: 042
     Dates: start: 20050818
  2. RITUXIMAB OR PLACEBO(RITUXIMAB) CONC FOR SOLUTION FOR INFUSION [Suspect]
  3. BACLOFEN [Concomitant]
  4. MELOXICAM [Concomitant]
  5. PAXIL [Concomitant]
  6. VENTOLIN (ALBUTEROL/ALBUTEROL SULFATE) [Concomitant]
  7. FLOVENT [Concomitant]

REACTIONS (4)
  - CHRONIC OBSTRUCTIVE PULMONARY DISEASE [None]
  - LOWER RESPIRATORY TRACT INFECTION [None]
  - RESPIRATORY ARREST [None]
  - RESPIRATORY FAILURE [None]
